FAERS Safety Report 9445182 (Version 2)
Quarter: 2013Q3

REPORT INFORMATION
  Report Type: Report from Study
  Country: US (occurrence: US)
  Receive Date: 20130807
  Receipt Date: 20130829
  Transmission Date: 20140515
  Serious: Yes (Hospitalization)
  Sender: FDA-Public Use
  Company Number: US-GLAXOSMITHKLINE-A1036390A

PATIENT
  Sex: 0

DRUGS (7)
  1. LAPATINIB [Suspect]
     Indication: BREAST CANCER
     Dosage: 1000MG PER DAY
     Dates: start: 20130611
  2. TAXOL [Suspect]
     Indication: BREAST CANCER
     Dates: start: 20130611
  3. TRASTUZUMAB [Suspect]
     Indication: BREAST CANCER
     Dates: start: 20130611
  4. ALENDRONATE SODIUM [Concomitant]
     Dates: start: 20130418
  5. DEXAMETHASON [Concomitant]
     Dates: start: 20130625
  6. ESOMEPRAZOLE MAGNESIUM [Concomitant]
     Dates: start: 20130418
  7. NITROFURANTOIN [Concomitant]
     Dates: start: 20130625

REACTIONS (1)
  - Dehydration [Recovered/Resolved]
